FAERS Safety Report 18197512 (Version 1)
Quarter: 2020Q3

REPORT INFORMATION
  Report Type: Spontaneous
  Country: GB (occurrence: GB)
  Receive Date: 20200826
  Receipt Date: 20200826
  Transmission Date: 20201103
  Serious: Yes (Hospitalization, Other)
  Sender: FDA-Public Use
  Company Number: GB-TORRENT-00023984

PATIENT
  Age: 54 Year
  Sex: Female

DRUGS (7)
  1. RISPERIDONE. [Concomitant]
     Active Substance: RISPERIDONE
     Indication: PRODUCT USED FOR UNKNOWN INDICATION
     Dosage: EVERY
  2. TETRABENAZINE. [Concomitant]
     Active Substance: TETRABENAZINE
     Indication: PRODUCT USED FOR UNKNOWN INDICATION
     Dosage: EVERY
  3. QUETIAPINE. [Suspect]
     Active Substance: QUETIAPINE
     Indication: PSYCHOTIC DISORDER
     Dosage: EVERY
     Route: 048
  4. OLANZAPINE. [Concomitant]
     Active Substance: OLANZAPINE
     Indication: PSYCHOTIC DISORDER
     Dosage: EVERY
  5. CLONAZEPAM. [Concomitant]
     Active Substance: CLONAZEPAM
     Indication: SEDATIVE THERAPY
     Dosage: EVERY
  6. PROPRANOLOL [Concomitant]
     Active Substance: PROPRANOLOL HYDROCHLORIDE
     Indication: PRODUCT USED FOR UNKNOWN INDICATION
     Dosage: EVERY
  7. ZOPICLONE [Concomitant]
     Active Substance: ZOPICLONE
     Indication: SLEEP DISORDER
     Dosage: EVERY

REACTIONS (15)
  - Pain [Unknown]
  - Epilepsy [Unknown]
  - Suicidal ideation [Unknown]
  - Huntington^s disease [Unknown]
  - Parkinsonism [Unknown]
  - Depression [Unknown]
  - Separation anxiety disorder [Unknown]
  - Oromandibular dystonia [Not Recovered/Not Resolved]
  - Disturbance in attention [Unknown]
  - Anxiety [Unknown]
  - Impaired quality of life [Unknown]
  - Teeth brittle [Unknown]
  - Tardive dyskinesia [Not Recovered/Not Resolved]
  - Emotional distress [Unknown]
  - Panic attack [Unknown]
